FAERS Safety Report 10061009 (Version 1)
Quarter: 2014Q2

REPORT INFORMATION
  Report Type: Report from Study
  Country: FR (occurrence: FR)
  Receive Date: 20140405
  Receipt Date: 20140405
  Transmission Date: 20141212
  Serious: Yes (Other)
  Sender: FDA-Public Use
  Company Number: FR-ROCHE-1373775

PATIENT
  Sex: Female

DRUGS (23)
  1. RITUXIMAB [Suspect]
     Indication: RHEUMATOID ARTHRITIS
     Dosage: DAY 1
     Route: 065
     Dates: start: 20070917
  2. RITUXIMAB [Suspect]
     Dosage: DAY 15
     Route: 065
     Dates: start: 20071001
  3. RITUXIMAB [Suspect]
     Dosage: DAY 1
     Route: 065
     Dates: start: 20080418
  4. RITUXIMAB [Suspect]
     Dosage: DAY 15
     Route: 065
     Dates: start: 20080502
  5. RITUXIMAB [Suspect]
     Dosage: DAY 1
     Route: 065
     Dates: start: 20090129
  6. RITUXIMAB [Suspect]
     Dosage: DAY 15
     Route: 065
     Dates: start: 20090212
  7. RITUXIMAB [Suspect]
     Dosage: DAY 1
     Route: 065
     Dates: start: 20091210
  8. RITUXIMAB [Suspect]
     Dosage: DAY 15
     Route: 065
     Dates: start: 20100111
  9. RITUXIMAB [Suspect]
     Dosage: DAY 1
     Route: 065
     Dates: start: 20110928
  10. RITUXIMAB [Suspect]
     Dosage: DAY 15
     Route: 065
     Dates: start: 20111012
  11. RITUXIMAB [Suspect]
     Dosage: DAY 1
     Route: 065
     Dates: start: 20120607
  12. RITUXIMAB [Suspect]
     Dosage: DAY 15
     Route: 065
     Dates: start: 20120621
  13. RITUXIMAB [Suspect]
     Dosage: DAY 1
     Route: 065
     Dates: start: 20130102
  14. RITUXIMAB [Suspect]
     Dosage: DAY 15
     Route: 065
     Dates: start: 20130116
  15. CORTANCYL [Concomitant]
     Route: 065
  16. CORTANCYL [Concomitant]
     Route: 065
  17. CORTANCYL [Concomitant]
     Route: 065
  18. CORTANCYL [Concomitant]
     Route: 065
  19. CORTANCYL [Concomitant]
     Route: 065
  20. CORTANCYL [Concomitant]
     Route: 065
  21. METHYLPREDNISOLONE [Concomitant]
  22. HYDROCORTISONE [Concomitant]
     Route: 065
  23. PARACETAMOL [Concomitant]
     Route: 065
     Dates: start: 20080418

REACTIONS (15)
  - Asthenia [Recovered/Resolved]
  - Dysphonia [Recovered/Resolved]
  - Bone fissure [Not Recovered/Not Resolved]
  - Hypogammaglobulinaemia [Not Recovered/Not Resolved]
  - Herpes zoster [Recovered/Resolved]
  - Tooth abscess [Recovered/Resolved]
  - Diarrhoea [Recovered/Resolved]
  - Hordeolum [Recovered/Resolved]
  - Femoral neck fracture [Recovered/Resolved]
  - Fall [Unknown]
  - Laryngitis [Not Recovered/Not Resolved]
  - Productive cough [Not Recovered/Not Resolved]
  - Influenza like illness [Recovered/Resolved]
  - Headache [Recovered/Resolved]
  - Dysglobulinaemia [Not Recovered/Not Resolved]
